FAERS Safety Report 8197390-3 (Version None)
Quarter: 2012Q1

REPORT INFORMATION
  Report Type: 
  Country: None (occurrence: None)
  Receive Date: 20120309
  Receipt Date: 20120228
  Transmission Date: 20120608
  Serious: Yes (Hospitalization)
  Sender: FDA-Public Use
  Company Number: CZ-JNJFOC-20120214342

PATIENT
  Sex: Female

DRUGS (101)
  1. RITUXIMAB [Suspect]
     Indication: DIFFUSE LARGE B-CELL LYMPHOMA
     Route: 042
     Dates: start: 20110331
  2. RITUXIMAB [Suspect]
     Route: 042
     Dates: start: 20110513
  3. PREDNISONE [Suspect]
     Indication: DIFFUSE LARGE B-CELL LYMPHOMA
     Route: 048
     Dates: start: 20110422
  4. LYRICA [Concomitant]
     Route: 048
     Dates: start: 20110410, end: 20110413
  5. ACYCLOVIR [Concomitant]
     Route: 048
     Dates: start: 20110507, end: 20110507
  6. OMEPRAZOLE [Concomitant]
     Route: 065
     Dates: start: 20110325, end: 20110410
  7. DIPYRONE TAB [Concomitant]
     Route: 065
     Dates: start: 20110304, end: 20110410
  8. METHYLPREDNISOLONE [Concomitant]
     Route: 042
     Dates: start: 20110603
  9. METHOTREXATE [Concomitant]
     Route: 037
     Dates: start: 20110513
  10. OMEPRAZOLE [Concomitant]
     Route: 065
     Dates: start: 20110410, end: 20110411
  11. SODIUM CHLORIDE [Concomitant]
     Route: 065
     Dates: start: 20110411
  12. SODIUM CHLORIDE [Concomitant]
     Route: 065
     Dates: start: 20110413, end: 20110414
  13. DEGAN [Concomitant]
     Route: 042
     Dates: start: 20110501, end: 20110507
  14. UNKNOWN MEDICATION [Concomitant]
     Dosage: HALF A TABLET
     Route: 048
     Dates: start: 19950101
  15. UNKNOWN MEDICATION [Concomitant]
     Route: 048
     Dates: start: 20110504
  16. DURAGESIC-100 [Concomitant]
     Route: 062
     Dates: start: 20110415
  17. NEULASTA [Suspect]
     Route: 058
     Dates: start: 20110402
  18. VINCRISTINE [Suspect]
     Indication: DIFFUSE LARGE B-CELL LYMPHOMA
     Route: 042
     Dates: start: 20110401
  19. PROTHIADEN [Concomitant]
     Route: 048
     Dates: start: 20110413, end: 20110418
  20. SPIRONOLACTONE [Concomitant]
     Route: 048
     Dates: start: 20110503, end: 20110507
  21. KALNORMIN [Concomitant]
     Route: 065
     Dates: start: 20110414
  22. KALNORMIN [Concomitant]
     Route: 065
     Dates: start: 20110415, end: 20110418
  23. PIPERACILLIN AND TAZOBACTAM [Concomitant]
     Route: 042
     Dates: start: 20110410, end: 20110411
  24. SODIUM CHLORIDE [Concomitant]
     Route: 065
     Dates: start: 20110503
  25. POTASSIUM CHLORIDE [Concomitant]
     Route: 065
     Dates: start: 20110505
  26. POTASSIUM CHLORIDE [Concomitant]
     Route: 065
     Dates: start: 20110503
  27. ONDEMET [Concomitant]
     Route: 042
     Dates: start: 20110505
  28. NEUPOGEN [Suspect]
     Route: 058
     Dates: start: 20110424
  29. NEUPOGEN [Suspect]
     Dosage: 30 MU
     Route: 058
     Dates: start: 20110501, end: 20110504
  30. VINCRISTINE [Suspect]
     Route: 042
     Dates: start: 20110422
  31. LORISTA [Concomitant]
     Indication: BLOOD PRESSURE
     Route: 065
     Dates: start: 19950101, end: 20110410
  32. ACYCLOVIR [Concomitant]
     Route: 048
     Dates: start: 20110311
  33. SPIRONOLACTONE [Concomitant]
     Route: 048
     Dates: start: 20110413
  34. KALNORMIN [Concomitant]
     Route: 065
     Dates: start: 20110411
  35. ZOLPIDEM [Concomitant]
     Route: 065
     Dates: start: 20110325, end: 20110410
  36. BOPINDOLOL [Concomitant]
     Route: 048
     Dates: start: 20110410
  37. ENTIZOL [Concomitant]
     Route: 065
     Dates: start: 20110412, end: 20110418
  38. SODIUM CHLORIDE [Concomitant]
     Route: 065
     Dates: start: 20110505
  39. DURAGESIC-100 [Concomitant]
     Route: 062
     Dates: start: 20110412
  40. DOXORUBICIN HCL [Suspect]
     Route: 042
     Dates: start: 20110401
  41. NEULASTA [Suspect]
     Indication: DIFFUSE LARGE B-CELL LYMPHOMA
     Route: 058
     Dates: start: 20110422
  42. PREDNISONE [Suspect]
     Route: 048
     Dates: start: 20110401
  43. COTRIM [Concomitant]
     Route: 065
     Dates: start: 20110311
  44. DALTEPARIN SODIUM [Concomitant]
     Route: 065
     Dates: start: 20110408
  45. ENOXAPARIN SODIUM [Concomitant]
     Route: 065
     Dates: start: 20110411
  46. CYTARABINE [Concomitant]
     Route: 042
     Dates: start: 20110607
  47. NOVALGIN [Concomitant]
     Route: 048
     Dates: start: 20110411
  48. SODIUM CHLORIDE [Concomitant]
     Route: 065
     Dates: start: 20110415
  49. AMIKIN [Concomitant]
     Route: 042
     Dates: start: 20110501, end: 20110503
  50. CALCIUM EFFERVESCENT [Concomitant]
     Route: 048
     Dates: start: 20110504, end: 20110505
  51. DURAGESIC-100 [Concomitant]
     Route: 062
     Dates: start: 20110418
  52. NEULASTA [Suspect]
     Route: 058
     Dates: start: 20110608
  53. NEULASTA [Suspect]
     Route: 058
     Dates: start: 20110518
  54. RITUXIMAB [Suspect]
     Route: 042
     Dates: start: 20110603
  55. CYCLOPHOSPHAMIDE [Suspect]
     Route: 042
     Dates: start: 20110331
  56. CYCLOPHOSPHAMIDE [Suspect]
     Route: 042
     Dates: start: 20110401
  57. COTRIM [Concomitant]
     Route: 048
     Dates: start: 20110502, end: 20110507
  58. MYCOMAX [Concomitant]
     Route: 065
     Dates: start: 20110412, end: 20110418
  59. ALLOPURINOL [Concomitant]
     Route: 065
     Dates: start: 20110325, end: 20110523
  60. ZOLPIDEM [Concomitant]
     Indication: INSOMNIA
     Route: 065
     Dates: start: 20110503, end: 20110506
  61. BOPINDOLOL [Concomitant]
     Route: 048
     Dates: start: 19950101
  62. OMEPRAZOLE [Concomitant]
     Route: 065
     Dates: start: 20110503
  63. ETOPOSIDE [Concomitant]
     Route: 042
     Dates: start: 20110603
  64. CISPLATIN [Concomitant]
     Route: 042
     Dates: start: 20110603
  65. SODIUM CHLORIDE [Concomitant]
     Route: 065
     Dates: start: 20110410
  66. DEXTROSE 5% [Concomitant]
     Route: 065
     Dates: start: 20110413
  67. MAGNESIUM SULFATE [Concomitant]
     Route: 065
     Dates: start: 20110505
  68. DOXORUBICIN HCL [Suspect]
     Route: 042
     Dates: start: 20110422
  69. NEUPOGEN [Suspect]
     Indication: DIFFUSE LARGE B-CELL LYMPHOMA
     Dosage: 48 MU
     Route: 058
     Dates: start: 20110501, end: 20110505
  70. CYCLOPHOSPHAMIDE [Suspect]
     Indication: DIFFUSE LARGE B-CELL LYMPHOMA
     Route: 042
     Dates: start: 20110422
  71. SPIRONOLACTONE [Concomitant]
     Indication: OEDEMA
     Route: 048
     Dates: start: 20110410, end: 20110411
  72. KALNORMIN [Concomitant]
     Route: 065
     Dates: start: 20110410
  73. KALNORMIN [Concomitant]
     Route: 065
     Dates: start: 20110402
  74. BOPINDOLOL [Concomitant]
     Dosage: 1/2 TABLET
     Route: 048
     Dates: start: 20110504
  75. METHYLPREDNISOLONE [Concomitant]
     Route: 042
     Dates: start: 20110513
  76. CYTARABINE [Concomitant]
     Route: 042
     Dates: start: 20110517
  77. SODIUM CHLORIDE [Concomitant]
     Route: 065
     Dates: start: 20110412
  78. POTASSIUM CHLORIDE [Concomitant]
     Route: 065
     Dates: start: 20110412, end: 20110415
  79. TANTUM VERDE [Concomitant]
     Route: 065
  80. HEPARIN [Concomitant]
     Route: 058
     Dates: start: 20110506
  81. DOXORUBICIN HCL [Suspect]
     Indication: DIFFUSE LARGE B-CELL LYMPHOMA
     Route: 042
     Dates: start: 20110331
  82. ORGAMETRIL [Concomitant]
     Route: 048
     Dates: start: 20100501, end: 20110410
  83. PROTHIADEN [Concomitant]
     Route: 048
     Dates: start: 20110311, end: 20110410
  84. HUMALOG [Concomitant]
     Route: 058
     Dates: start: 20100101
  85. HUMALOG [Concomitant]
     Route: 058
     Dates: start: 20110501, end: 20110505
  86. BOPINDOLOL [Concomitant]
     Route: 048
     Dates: start: 20110412, end: 20110418
  87. HYLAK [Concomitant]
     Route: 048
     Dates: start: 20110415
  88. RITUXIMAB [Suspect]
     Route: 042
     Dates: start: 20110422
  89. LORISTA [Concomitant]
     Route: 065
     Dates: start: 20110412
  90. ORGAMETRIL [Concomitant]
     Route: 048
     Dates: start: 20110412
  91. SPIRONOLACTONE [Concomitant]
     Route: 048
     Dates: start: 20110315
  92. SPIRONOLACTONE [Concomitant]
     Route: 048
     Dates: start: 20110414, end: 20110418
  93. OMEPRAZOLE [Concomitant]
     Route: 065
     Dates: start: 20110410, end: 20110411
  94. ETOPOSIDE [Concomitant]
     Route: 042
     Dates: start: 20110513
  95. CISPLATIN [Concomitant]
     Route: 042
     Dates: start: 20110513
  96. METHOTREXATE [Concomitant]
     Route: 037
     Dates: start: 20110603
  97. PIPERACILLIN AND TAZOBACTAM [Concomitant]
     Route: 042
     Dates: start: 20110411
  98. ALLOPURINOL [Concomitant]
     Route: 048
     Dates: start: 20110410
  99. IMIPENEM AND CILASTATIN SODIUM [Concomitant]
     Route: 042
     Dates: start: 20110502, end: 20110503
  100. MAGNESIUM [Concomitant]
     Route: 048
     Dates: start: 20110504
  101. CITALOPRAM HYDROBROMIDE [Concomitant]
     Route: 048
     Dates: start: 20110502, end: 20110507

REACTIONS (2)
  - DYSPNOEA EXERTIONAL [None]
  - FEBRILE NEUTROPENIA [None]
